FAERS Safety Report 5335974-8 (Version None)
Quarter: 2007Q2

REPORT INFORMATION
  Report Type: 
  Country: None (occurrence: None)
  Receive Date: 20070302
  Receipt Date: 20061019
  Transmission Date: 20071010
  Serious: Yes (Hospitalization)
  Sender: FDA-Public Use
  Company Number: 2421

PATIENT
  Age: 62 Year
  Sex: Female

DRUGS (4)
  1. TARGRETIN [Suspect]
     Indication: MYCOSIS FUNGOIDES
     Dates: start: 20060113, end: 20060328
  2. IRBESARTAN - HYDROCHLOROTHIAZIDE [Concomitant]
  3. LEVOMETHADYL ACETATE [Concomitant]
  4. LEVOTHYROXINE SODIUM [Concomitant]

REACTIONS (3)
  - OEDEMA [None]
  - PAIN [None]
  - RASH [None]
